FAERS Safety Report 6714082-5 (Version None)
Quarter: 2010Q2

REPORT INFORMATION
  Report Type: 
  Country: None (occurrence: None)
  Receive Date: 20100506
  Receipt Date: 20100426
  Transmission Date: 20101027
  Serious: Yes (Hospitalization)
  Sender: FDA-Public Use
  Company Number: FR-ABBOTT-10P-056-0640612-00

PATIENT
  Sex: Male

DRUGS (7)
  1. HUMIRA [Suspect]
     Indication: ANKYLOSING SPONDYLITIS
     Route: 058
     Dates: start: 20090707, end: 20100203
  2. HUMIRA [Suspect]
     Indication: PSORIASIS
     Dosage: DRUG REINTRODUCED
  3. KETOPROFEN [Concomitant]
     Indication: ANKYLOSING SPONDYLITIS
  4. KARDEGIC [Concomitant]
     Indication: CARDIOVASCULAR EVENT PROPHYLAXIS
  5. KARDEGIC [Concomitant]
  6. KENZEN [Concomitant]
     Indication: HYPERTENSION
  7. LIPIREX [Concomitant]
     Indication: HYPERCHOLESTEROLAEMIA
     Route: 048

REACTIONS (4)
  - HYPERTHERMIA [None]
  - MICTURITION DISORDER [None]
  - PROSTATITIS ESCHERICHIA COLI [None]
  - URINARY TRACT INFECTION [None]
